FAERS Safety Report 20438614 (Version 2)
Quarter: 2022Q1

REPORT INFORMATION
  Report Type: Report from Study
  Country: US (occurrence: US)
  Receive Date: 20220207
  Receipt Date: 20220311
  Transmission Date: 20220423
  Serious: Yes (Hospitalization, Other)
  Sender: FDA-Public Use
  Company Number: US-BRISTOL-MYERS SQUIBB COMPANY-BMS-2022-006580

PATIENT
  Age: 62 Year
  Sex: Female
  Weight: 97.52 kg

DRUGS (1)
  1. APIXABAN [Suspect]
     Active Substance: APIXABAN
     Indication: Cerebrovascular accident prophylaxis
     Dosage: 5 MILLIGRAM, BID
     Route: 065
     Dates: start: 20201103

REACTIONS (3)
  - COVID-19 pneumonia [Unknown]
  - Drug ineffective [Unknown]
  - Epistaxis [Recovered/Resolved]
